FAERS Safety Report 9636084 (Version 1)
Quarter: 2013Q4

REPORT INFORMATION
  Report Type: Spontaneous
  Country: IN (occurrence: IN)
  Receive Date: 20131021
  Receipt Date: 20131021
  Transmission Date: 20140711
  Serious: Yes (Hospitalization)
  Sender: FDA-Public Use
  Company Number: IN-MYLANLABS-2013S1022747

PATIENT
  Age: 12 Year
  Sex: Male

DRUGS (1)
  1. SODIUM VALPROATE [Suspect]
     Indication: CONVULSION
     Dosage: 400 MG/DAY
     Route: 065

REACTIONS (1)
  - MELAS syndrome [Recovering/Resolving]
